FAERS Safety Report 6163808-0 (Version None)
Quarter: 2009Q2

REPORT INFORMATION
  Report Type: 
  Country: None (occurrence: None)
  Receive Date: 20090413
  Receipt Date: 20090401
  Transmission Date: 20091009
  Serious: Yes (Hospitalization)
  Sender: FDA-Public Use
  Company Number: 2009-194402-NL

PATIENT
  Age: 65 Year
  Sex: Male

DRUGS (1)
  1. BCG LIVE [Suspect]
     Dosage: INTRAVESICAL
     Route: 043

REACTIONS (8)
  - ALANINE AMINOTRANSFERASE INCREASED [None]
  - ASPARTATE AMINOTRANSFERASE INCREASED [None]
  - BONE MARROW GRANULOMA [None]
  - GRANULOMA [None]
  - GRANULOMATOUS LIVER DISEASE [None]
  - HEPATIC NECROSIS [None]
  - PANCYTOPENIA [None]
  - PYREXIA [None]
